FAERS Safety Report 7246913-7 (Version None)
Quarter: 2011Q1

REPORT INFORMATION
  Report Type: 
  Country: None (occurrence: None)
  Receive Date: 20110127
  Receipt Date: 20110121
  Transmission Date: 20110831
  Serious: Yes (Other)
  Sender: FDA-Public Use
  Company Number: GB-BRISTOL-MYERS SQUIBB COMPANY-15418718

PATIENT
  Age: 26 Year
  Sex: Female
  Weight: 55 kg

DRUGS (2)
  1. ABILIFY [Suspect]
     Indication: PSYCHOTIC DISORDER
     Dosage: RECOMMENCED TITRATED DOSE 20MG; MAINTAINENCE DOSE 5MG/DAY.
     Route: 048
     Dates: start: 20080501, end: 20080701
  2. OLANZAPINE [Suspect]
     Indication: PSYCHOTIC DISORDER
     Route: 048

REACTIONS (2)
  - PSYCHOTIC DISORDER [None]
  - TREATMENT NONCOMPLIANCE [None]
